FAERS Safety Report 10271441 (Version 1)
Quarter: 2014Q3

REPORT INFORMATION
  Report Type: Spontaneous
  Country: DE (occurrence: DE)
  Receive Date: 20140701
  Receipt Date: 20140701
  Transmission Date: 20150326
  Serious: Yes (Other)
  Sender: FDA-Public Use
  Company Number: DE-TEVA-491351GER

PATIENT
  Age: 21 Year
  Sex: Female
  Weight: 78 kg

DRUGS (1)
  1. VALPROINSAEURE [Suspect]
     Active Substance: VALPROIC ACID
     Indication: EPILEPSY
     Dosage: 1000 MILLIGRAM DAILY;
     Route: 048
     Dates: start: 20130512, end: 20131004

REACTIONS (3)
  - Convulsion [None]
  - Exposure during pregnancy [Recovered/Resolved]
  - Abortion induced complete [Recovered/Resolved]

NARRATIVE: CASE EVENT DATE: 20130504
